FAERS Safety Report 5959727-2 (Version None)
Quarter: 2008Q4

REPORT INFORMATION
  Report Type: 
  Country: None (occurrence: None)
  Receive Date: 20081120
  Receipt Date: 20081113
  Transmission Date: 20090506
  Serious: Yes (Hospitalization)
  Sender: FDA-Public Use
  Company Number: FR-WYE-G02426008

PATIENT
  Sex: Male

DRUGS (2)
  1. TORISEL [Suspect]
     Indication: RENAL CANCER METASTATIC
     Dosage: 25 MG EVERY 1 CYC
     Route: 042
     Dates: start: 20080611
  2. AVASTIN [Suspect]
     Indication: RENAL CANCER METASTATIC
     Dosage: 950 MG PER CYCLE
     Route: 042
     Dates: start: 20080611, end: 20080924

REACTIONS (1)
  - ANAL FISSURE [None]
